FAERS Safety Report 9866006 (Version 2)
Quarter: 2014Q1

REPORT INFORMATION
  Report Type: Spontaneous
  Country: US (occurrence: US)
  Receive Date: 20140203
  Receipt Date: 20140203
  Transmission Date: 20141002
  Serious: No
  Sender: FDA-Public Use
  Company Number: US-ALLERGAN-1313840US

PATIENT
  Age: 69 Year
  Sex: Female

DRUGS (15)
  1. RESTASIS [Suspect]
     Indication: DRY EYE
     Dosage: 2 GTT, BID
     Route: 047
     Dates: start: 201308
  2. RESTASIS [Suspect]
     Dosage: 4 GTT, BID
     Route: 047
  3. RESTASIS [Suspect]
     Dosage: 4GTT, BID
     Route: 047
  4. RESTASIS [Suspect]
     Dosage: 2 UNK, UNK
     Route: 047
  5. RESTASIS [Suspect]
     Dosage: 2 UNK, UNK
     Route: 047
  6. REFRESH TEARS [Suspect]
     Indication: DRY EYE
     Dosage: 2 GTT, UNK
     Route: 047
  7. REFRESH PM                         /01210201/ [Concomitant]
     Indication: DRY EYE
     Dosage: UNK
  8. CRESTOR [Concomitant]
     Indication: PRODUCT USED FOR UNKNOWN INDICATION
     Dosage: UNK
  9. THYROID MEDICATION NOS [Concomitant]
     Indication: PRODUCT USED FOR UNKNOWN INDICATION
     Dosage: UNK
  10. OMEPRAZOLE [Concomitant]
     Indication: DRY EYE
     Dosage: 40 MG, QD
     Route: 048
  11. REFRESH EYE ITCH RELIEF [Concomitant]
     Indication: DRY EYE
     Dosage: UNK
     Route: 047
  12. CEVIMELINE [Concomitant]
     Indication: PRODUCT USED FOR UNKNOWN INDICATION
     Dosage: 30 MG, QHS
     Route: 048
  13. HYDROXYCHLOROQUINE [Concomitant]
     Indication: PRODUCT USED FOR UNKNOWN INDICATION
  14. LEVOTHYROXINE [Concomitant]
     Indication: PRODUCT USED FOR UNKNOWN INDICATION
  15. NORTRIPTYLINE [Concomitant]
     Dosage: UNK UNK, QHS

REACTIONS (8)
  - Incorrect dose administered [Unknown]
  - Photophobia [Not Recovered/Not Resolved]
  - Skin burning sensation [Unknown]
  - Vision blurred [Unknown]
  - Pain of skin [Unknown]
  - Eye irritation [Unknown]
  - Eye irritation [Unknown]
  - Drug ineffective [Unknown]
